FAERS Safety Report 15494600 (Version 1)
Quarter: 2018Q4

REPORT INFORMATION
  Report Type: Spontaneous
  Country: US (occurrence: US)
  Receive Date: 20181012
  Receipt Date: 20181012
  Transmission Date: 20190205
  Serious: Yes (Hospitalization, Disabling)
  Sender: FDA-Public Use
  Company Number: US-ASTRAZENECA-2018SF31357

PATIENT
  Age: 55 Year
  Sex: Female
  Weight: 59 kg

DRUGS (1)
  1. SYMBICORT [Suspect]
     Active Substance: BUDESONIDE\FORMOTEROL FUMARATE DIHYDRATE
     Indication: CHRONIC OBSTRUCTIVE PULMONARY DISEASE
     Dosage: 160/4.5 MCG 2 PUFFS TWICE PER DAY
     Route: 055
     Dates: start: 2014

REACTIONS (9)
  - Visual acuity reduced [Not Recovered/Not Resolved]
  - Astigmatism [Unknown]
  - Product use in unapproved indication [Unknown]
  - Pulmonary congestion [Unknown]
  - Pain [Not Recovered/Not Resolved]
  - Spinal compression fracture [Unknown]
  - Spinal disorder [Not Recovered/Not Resolved]
  - Off label use [Unknown]
  - Inability to afford medication [Unknown]

NARRATIVE: CASE EVENT DATE: 2014
